FAERS Safety Report 9313571 (Version 1)
Quarter: 2013Q2

REPORT INFORMATION
  Report Type: Spontaneous
  Country: ZA (occurrence: ZA)
  Receive Date: 20130528
  Receipt Date: 20130528
  Transmission Date: 20140414
  Serious: Yes (Death)
  Sender: FDA-Public Use
  Company Number: ZA-ASTRAZENECA-2013SE36043

PATIENT
  Age: 19 Year
  Sex: Female

DRUGS (2)
  1. BUPIVACAINE [Suspect]
     Route: 037
  2. FENTANYL [Suspect]
     Route: 037

REACTIONS (4)
  - Dyspnoea [Fatal]
  - Loss of consciousness [Fatal]
  - Cardiac arrest [Fatal]
  - Spinal anaesthesia [Fatal]
